FAERS Safety Report 21589990 (Version 1)
Quarter: 2022Q4

REPORT INFORMATION
  Report Type: Spontaneous
  Country: GB (occurrence: GB)
  Receive Date: 20221114
  Receipt Date: 20221114
  Transmission Date: 20230113
  Serious: Yes (Disabling)
  Sender: FDA-Public Use
  Company Number: None

PATIENT

DRUGS (17)
  1. ACETAMINOPHEN [Suspect]
     Active Substance: ACETAMINOPHEN
     Indication: Product used for unknown indication
     Route: 065
     Dates: start: 20221019
  2. INFLUENZA VIRUS VACCINE [Concomitant]
     Active Substance: INFLUENZA VIRUS VACCINE
     Indication: Influenza immunisation
     Dosage: 0.5 ML
     Dates: start: 20221002, end: 20221002
  3. ASPIRIN [Concomitant]
     Active Substance: ASPIRIN
     Dates: start: 20090121
  4. ATENOLOL [Concomitant]
     Active Substance: ATENOLOL
     Dosage: EACH MORNING
     Dates: start: 20020830, end: 20221019
  5. BISOPROLOL [Concomitant]
     Active Substance: BISOPROLOL
     Dates: start: 20100224
  6. CANDESARTAN [Concomitant]
     Active Substance: CANDESARTAN
     Dates: start: 20120502
  7. CIALIS [Concomitant]
     Active Substance: TADALAFIL
     Dosage: USE AS DIRECTED
     Dates: start: 20120326, end: 20221019
  8. POLYETHYLENE GLYCOL 3350\POTASSIUM CHLORIDE\SODIUM BICARBONATE\SODIUM [Concomitant]
     Active Substance: POLYETHYLENE GLYCOL 3350\POTASSIUM CHLORIDE\SODIUM BICARBONATE\SODIUM CHLORIDE
     Dosage: ONE OR TWO SACHETS TWICE A DAY AS NEEDED
     Dates: start: 20211206
  9. INDAPAMIDE [Concomitant]
     Active Substance: INDAPAMIDE
     Dosage: EACH MORNING
     Dates: start: 20210426
  10. NITROFURANTOIN [Concomitant]
     Active Substance: NITROFURANTOIN
     Dates: start: 20221003, end: 20221004
  11. PANTOPRAZOLE [Concomitant]
     Active Substance: PANTOPRAZOLE
     Dates: start: 20030924
  12. AMDINOCILLIN PIVOXIL [Concomitant]
     Active Substance: AMDINOCILLIN PIVOXIL
     Dosage: TAKE 2 IMMEDIATELY, THEN ONE 3 TIMES DAILY
     Dates: start: 20221010, end: 20221011
  13. LUPRON DEPOT [Concomitant]
     Active Substance: LEUPROLIDE ACETATE
     Dosage: STAT INJECTION
     Dates: start: 20210608, end: 20221010
  14. SCHERIPROCT [CINCHOCAINE HYDROCHLORIDE;PREDNISOLONE CAPROATE] [Concomitant]
     Dosage: INSERT ONE SUPPOSITORY INTO THE RECTUM DAILY
     Route: 054
     Dates: start: 20211206
  15. SIMVASTATIN [Concomitant]
     Active Substance: SIMVASTATIN
     Dosage: AT NIGHT
     Dates: start: 20090622, end: 20221019
  16. TADALAFIL [Concomitant]
     Active Substance: TADALAFIL
     Dates: start: 20120621, end: 20221019
  17. TAMSULOSIN HYDROCHLORIDE [Concomitant]
     Active Substance: TAMSULOSIN HYDROCHLORIDE
     Dosage: AS DIRECTED BY RADIOTH...
     Dates: start: 20211206

REACTIONS (1)
  - Chest pain [Recovered/Resolved]

NARRATIVE: CASE EVENT DATE: 20221027
